FAERS Safety Report 7876109-7 (Version None)
Quarter: 2011Q4

REPORT INFORMATION
  Report Type: 
  Country: None (occurrence: None)
  Receive Date: 20111031
  Receipt Date: 20111011
  Transmission Date: 20120403
  Serious: Yes (Hospitalization)
  Sender: FDA-Public Use
  Company Number: CA-JNJFOC-20111012184

PATIENT
  Sex: Female
  Weight: 54.5 kg

DRUGS (10)
  1. SIMVASTATIN [Concomitant]
  2. MORPHINE [Concomitant]
  3. ALPRAZOLAM [Concomitant]
  4. ZOFRAN [Concomitant]
  5. XANAX [Concomitant]
  6. REMICADE [Suspect]
     Indication: BEHCET'S SYNDROME
     Route: 042
     Dates: start: 20100512
  7. ATIVAN [Concomitant]
  8. TRAZODONE HYDROCHLORIDE [Concomitant]
  9. REMICADE [Suspect]
     Indication: CROHN'S DISEASE
     Route: 042
     Dates: start: 20100512
  10. IMOVANE [Concomitant]

REACTIONS (2)
  - INFLAMMATION [None]
  - LUNG INFECTION [None]
